FAERS Safety Report 9238502 (Version 1)
Quarter: 2013Q2

REPORT INFORMATION
  Report Type: Spontaneous
  Country: US (occurrence: None)
  Receive Date: 20130418
  Receipt Date: 20130418
  Transmission Date: 20140414
  Serious: Yes (Death)
  Sender: FDA-Public Use
  Company Number: None

PATIENT
  Age: 50 Year
  Sex: Male
  Weight: 100 kg

DRUGS (1)
  1. OMONTYS [Suspect]
     Indication: ANAEMIA
     Dosage: 15MG IV EVERY 4 WEEKS
     Route: 042
     Dates: start: 20130212, end: 20130212

REACTIONS (6)
  - Burning sensation [None]
  - Dyspnoea [None]
  - Unresponsive to stimuli [None]
  - Blood pressure systolic increased [None]
  - Skin discolouration [None]
  - Pulse absent [None]
